FAERS Safety Report 17555262 (Version 2)
Quarter: 2020Q2

REPORT INFORMATION
  Report Type: Spontaneous
  Country: DE (occurrence: DE)
  Receive Date: 20200318
  Receipt Date: 20200511
  Transmission Date: 20200713
  Serious: Yes (Other)
  Sender: FDA-Public Use
  Company Number: DE-GLAXOSMITHKLINE-DE2020044465

PATIENT
  Sex: Female
  Weight: 72 kg

DRUGS (9)
  1. NUCALA [Suspect]
     Active Substance: MEPOLIZUMAB
     Dosage: 1 ML, EVERY 4 WEEKS
     Route: 058
     Dates: start: 20200305
  2. NUCALA [Suspect]
     Active Substance: MEPOLIZUMAB
     Dosage: 1 ML, EVERY 4 WEEKS
     Route: 058
     Dates: start: 20191220
  3. SPIRIVA RESPIMAT [Concomitant]
     Active Substance: TIOTROPIUM BROMIDE
     Indication: PRODUCT USED FOR UNKNOWN INDICATION
     Dosage: UNK, 2.5, 2 (ILLEGIBLE)
  4. NUCALA [Suspect]
     Active Substance: MEPOLIZUMAB
     Indication: PRODUCT USED FOR UNKNOWN INDICATION
     Dosage: UNK, EVERY 4 WEEKS
     Route: 058
     Dates: start: 20191015
  5. NUCALA [Suspect]
     Active Substance: MEPOLIZUMAB
     Dosage: UNK, EVERY 4 WEEKS
     Route: 058
     Dates: start: 20191114
  6. REVINTY ELLIPTA [Suspect]
     Active Substance: FLUTICASONE FUROATE\VILANTEROL TRIFENATATE
     Indication: PRODUCT USED FOR UNKNOWN INDICATION
     Dosage: UNK, 184/22
     Dates: start: 20191028
  7. NUCALA [Suspect]
     Active Substance: MEPOLIZUMAB
     Dosage: 1 ML, EVERY 4 WEEKS, W/40 MG/-
     Route: 058
     Dates: start: 20200414
  8. SALBUTAMOL [Concomitant]
     Active Substance: ALBUTEROL
     Indication: PRODUCT USED FOR UNKNOWN INDICATION
     Dosage: UNK UNK, PRN
  9. RELVAR ELLIPTA [Concomitant]
     Active Substance: FLUTICASONE FUROATE\VILANTEROL TRIFENATATE
     Indication: PRODUCT USED FOR UNKNOWN INDICATION
     Dosage: UNK,184/22, 1 (ILLEGIBLE)

REACTIONS (5)
  - Myalgia [Unknown]
  - Uterine inflammation [Recovered/Resolved]
  - Pain [Recovered/Resolved]
  - Pain in extremity [Recovered/Resolved]
  - Noninfective oophoritis [Recovered/Resolved]
